FAERS Safety Report 9200538 (Version 2)
Quarter: 2013Q2

REPORT INFORMATION
  Report Type: Spontaneous
  Country: US (occurrence: US)
  Receive Date: 20130329
  Receipt Date: 20130516
  Transmission Date: 20140414
  Serious: Yes (Disabling, Other)
  Sender: FDA-Public Use
  Company Number: US-PFIZER INC-2013101660

PATIENT
  Age: 62 Year
  Sex: Female
  Weight: 72.56 kg

DRUGS (1)
  1. BEXTRA [Suspect]
     Indication: ARTHRITIS
     Dosage: UNK
     Dates: start: 2005

REACTIONS (2)
  - Cerebrovascular accident [Unknown]
  - Hemiplegia [Not Recovered/Not Resolved]
